FAERS Safety Report 16279127 (Version 3)
Quarter: 2019Q2

REPORT INFORMATION
  Report Type: Report from Study
  Country: CA (occurrence: CA)
  Receive Date: 20190506
  Receipt Date: 20190613
  Transmission Date: 20190711
  Serious: Yes (Other)
  Sender: FDA-Public Use
  Company Number: CA-BIOGEN-2019BI00718578

PATIENT
  Age: 71 Year
  Sex: Female

DRUGS (1)
  1. FAMPYRA [Suspect]
     Active Substance: DALFAMPRIDINE
     Indication: GAIT DISTURBANCE
     Route: 048
     Dates: start: 20190326

REACTIONS (4)
  - Intentional product misuse [Unknown]
  - Anxiety [Unknown]
  - Breast cancer in situ [Unknown]
  - Neurogenic shock [Unknown]

NARRATIVE: CASE EVENT DATE: 201906
